FAERS Safety Report 6767261-5 (Version None)
Quarter: 2010Q2

REPORT INFORMATION
  Report Type: 
  Country: None (occurrence: None)
  Receive Date: 20100614
  Receipt Date: 20100607
  Transmission Date: 20101027
  Serious: Yes (Death)
  Sender: FDA-Public Use
  Company Number: US-TYCO HEALTHCARE/MALLINCKRODT-T201001064

PATIENT

DRUGS (2)
  1. PAMELOR [Suspect]
     Dosage: UNK
     Route: 048
  2. ALL OTHER THERAPEUTIC PRODUCTS [Suspect]
     Dosage: UNK

REACTIONS (2)
  - COMPLETED SUICIDE [None]
  - DRUG TOXICITY [None]
